FAERS Safety Report 14596760 (Version 1)
Quarter: 2018Q1

REPORT INFORMATION
  Report Type: Spontaneous
  Country: GB (occurrence: GB)
  Receive Date: 20180304
  Receipt Date: 20180304
  Transmission Date: 20180509
  Serious: Yes (Disabling, Other)
  Sender: FDA-Public Use
  Company Number: GB-AMGEN-GBRSP2017178751

PATIENT
  Age: 53 Year
  Sex: Female
  Weight: 74 kg

DRUGS (6)
  1. BETAMETHASONE VALERATE W/FUSIDIC ACID [Concomitant]
     Dosage: APPLY THINLY ONCE OR TWICE A DAY
     Route: 061
     Dates: start: 20170213
  2. FLUTICASONE FUROATE [Concomitant]
     Active Substance: FLUTICASONE FUROATE
     Dosage: ONE SPRAY TO BE USED IN EACH NOSTRIL ONCE A DAY
     Route: 045
     Dates: start: 20170424
  3. HYPROMELLOSE [Concomitant]
     Active Substance: HYPROMELLOSES
     Indication: DRY EYE
     Dosage: ONE OR TWO DROPS INTO EACH EYE WHEN REQUIRED
     Dates: start: 20170327
  4. HYDROXOCOBALAMIN [Concomitant]
     Active Substance: HYDROXOCOBALAMIN
     Dosage: 1 AMPOULE EVERY 8-12 WEEKS
     Dates: start: 20170904
  5. ENBREL [Suspect]
     Active Substance: ETANERCEPT
     Indication: RHEUMATOID ARTHRITIS
     Dosage: 25 MG, 2 TIMES/WK
     Route: 065
  6. DOXYCYCLINE. [Concomitant]
     Active Substance: DOXYCYCLINE
     Indication: ROSACEA
     Dosage: 500 MG, DAILY
     Dates: start: 20160517

REACTIONS (5)
  - Malaise [Recovered/Resolved]
  - Skin lesion [Recovered/Resolved]
  - Skin infection [Recovered/Resolved]
  - Condition aggravated [Unknown]
  - Cellulitis [Recovered/Resolved]

NARRATIVE: CASE EVENT DATE: 2017
